FAERS Safety Report 5063603-X (Version None)
Quarter: 2006Q3

REPORT INFORMATION
  Report Type: 
  Country: None (occurrence: None)
  Receive Date: 20060727
  Receipt Date: 20060717
  Transmission Date: 20061208
  Serious: Yes (Other)
  Sender: FDA-Public Use
  Company Number: US-ROCHE-455860

PATIENT
  Age: 55 Year
  Sex: Female
  Weight: 81.6 kg

DRUGS (5)
  1. BONIVA [Suspect]
     Indication: OSTEOPENIA
     Route: 048
     Dates: start: 20050515, end: 20060315
  2. PRANDIN [Concomitant]
  3. LIPITOR [Concomitant]
     Indication: HYPERCHOLESTEROLAEMIA
  4. SYNTHROID [Concomitant]
     Indication: HYPOTHYROIDISM
  5. UNSPECIFIED DRUG [Concomitant]
     Indication: HYPERTENSION

REACTIONS (2)
  - BREAST CANCER [None]
  - BREAST CANCER FEMALE [None]
